FAERS Safety Report 9373868 (Version 6)
Quarter: 2014Q3

REPORT INFORMATION
  Report Type: Report from Study
  Country: IT (occurrence: IT)
  Receive Date: 20130628
  Receipt Date: 20140923
  Transmission Date: 20150326
  Serious: Yes (Other)
  Sender: FDA-Public Use
  Company Number: IT-ROCHE-1242291

PATIENT
  Age: 39 Year
  Sex: Male
  Weight: 70 kg

DRUGS (4)
  1. ZELBORAF [Suspect]
     Active Substance: VEMURAFENIB
     Indication: METASTATIC MALIGNANT MELANOMA
     Route: 048
     Dates: start: 20120803, end: 20130328
  2. ZELBORAF [Suspect]
     Active Substance: VEMURAFENIB
     Route: 048
     Dates: start: 20130518, end: 20130821
  3. ZELBORAF [Suspect]
     Active Substance: VEMURAFENIB
     Route: 048
     Dates: start: 20120803, end: 20130328
  4. ZELBORAF [Suspect]
     Active Substance: VEMURAFENIB
     Dosage: THERAPY INTERUPTED FROM 06/APR/2014 TO 21/MAY/2014
     Route: 048
     Dates: start: 20120803

REACTIONS (9)
  - Weight decreased [Recovered/Resolved]
  - Nausea [Recovered/Resolved]
  - Ejaculation failure [Recovered/Resolved]
  - Decreased appetite [Recovered/Resolved]
  - Dysgeusia [Not Recovered/Not Resolved]
  - Palmar-plantar erythrodysaesthesia syndrome [Not Recovered/Not Resolved]
  - Arthralgia [Not Recovered/Not Resolved]
  - Pain in extremity [Recovered/Resolved]
  - Asthenia [Recovered/Resolved]

NARRATIVE: CASE EVENT DATE: 20120927
